FAERS Safety Report 14838182 (Version 2)
Quarter: 2018Q4

REPORT INFORMATION
  Report Type: Spontaneous
  Country: JP (occurrence: JP)
  Receive Date: 20180502
  Receipt Date: 20181002
  Transmission Date: 20190204
  Serious: Yes (Other)
  Sender: FDA-Public Use
  Company Number: JP-BAYER-2018-083550

PATIENT
  Sex: Female

DRUGS (3)
  1. YAZ [Suspect]
     Active Substance: DROSPIRENONE\ETHINYL ESTRADIOL
     Indication: MENSTRUAL CYCLE MANAGEMENT
     Dosage: 1 DF, QD
     Route: 048
     Dates: start: 20180402
  2. IRON [Concomitant]
     Active Substance: IRON
     Indication: ANAEMIA
  3. YAZ [Suspect]
     Active Substance: DROSPIRENONE\ETHINYL ESTRADIOL
     Route: 048

REACTIONS (13)
  - Loss of consciousness [None]
  - Metrorrhagia [Not Recovered/Not Resolved]
  - Product use in unapproved indication [None]
  - Product label issue [None]
  - Dizziness [None]
  - Koilonychia [None]
  - Diarrhoea [None]
  - Anaemia [None]
  - Hyperthermia [None]
  - Off label use [None]
  - Fluid intake reduced [None]
  - Dizziness postural [None]
  - Dark circles under eyes [None]

NARRATIVE: CASE EVENT DATE: 20180402
